FAERS Safety Report 7540918-4 (Version None)
Quarter: 2011Q2

REPORT INFORMATION
  Report Type: 
  Country: None (occurrence: None)
  Receive Date: 20110610
  Receipt Date: 20110606
  Transmission Date: 20111010
  Serious: Yes (Death, Life-Threatening, Hospitalization)
  Sender: FDA-Public Use
  Company Number: ZA-BRISTOL-MYERS SQUIBB COMPANY-14973986

PATIENT
  Age: 45 Year
  Sex: Male
  Weight: 80 kg

DRUGS (3)
  1. CARBOPLATIN [Suspect]
     Indication: NON-SMALL CELL LUNG CANCER
     Dosage: ON DAY 1 OF 21DAY CYCLE RECENT INF:09DEC09 1 DF = 6 AUC
     Route: 042
     Dates: start: 20091007, end: 20091209
  2. PACLITAXEL [Suspect]
     Indication: NON-SMALL CELL LUNG CANCER
     Dosage: RECENT INFUSION ON 09-DEC-2009.
     Route: 042
     Dates: start: 20091007, end: 20091209
  3. CETUXIMAB [Suspect]
     Indication: NON-SMALL CELL LUNG CANCER
     Dosage: CETUXIMAB 5MG/ML INFUSION.RECENT INFUSION ON 27JAN2010.NO OF INFUSION-16. INTERRUPTED ON 27JAN2010
     Route: 042
     Dates: start: 20091006, end: 20100127

REACTIONS (2)
  - PULMONARY EMBOLISM [None]
  - PNEUMONIA [None]
